FAERS Safety Report 18525472 (Version 2)
Quarter: 2020Q4

REPORT INFORMATION
  Report Type: Spontaneous
  Country: NO (occurrence: NO)
  Receive Date: 20201120
  Receipt Date: 20201123
  Transmission Date: 20210114
  Serious: Yes (Congenital Anomaly)
  Sender: FDA-Public Use
  Company Number: NO-JNJFOC-20201120076

PATIENT

DRUGS (6)
  1. ASACOL [Concomitant]
     Active Substance: MESALAMINE
     Route: 064
     Dates: start: 2014
  2. LANTUS [Concomitant]
     Active Substance: INSULIN GLARGINE
     Indication: TYPE 1 DIABETES MELLITUS
     Dosage: 52 UNITS IN THE MORNING
     Route: 064
     Dates: start: 2008
  3. NOVORAPID [Concomitant]
     Active Substance: INSULIN ASPART
     Indication: TYPE 1 DIABETES MELLITUS
     Dosage: 4-6 IE IN RELATION TO MEALS
     Route: 064
     Dates: start: 2008
  4. PURINETHOL [Suspect]
     Active Substance: MERCAPTOPURINE
     Indication: COLITIS ULCERATIVE
     Route: 064
     Dates: start: 20181217, end: 201912
  5. INFLIXIMAB, RECOMBINANT [Suspect]
     Active Substance: INFLIXIMAB
     Indication: COLITIS ULCERATIVE
     Route: 064
     Dates: start: 201812
  6. ASACOL [Concomitant]
     Active Substance: MESALAMINE
     Indication: COLITIS ULCERATIVE
     Route: 064
     Dates: start: 2014

REACTIONS (7)
  - Bicuspid aortic valve [Unknown]
  - Ventricular septal defect [Unknown]
  - Double outlet right ventricle [Unknown]
  - Foetal exposure during pregnancy [Unknown]
  - Pulmonary sequestration [Unknown]
  - Congenital foot malformation [Unknown]
  - Encephalocele [Unknown]

NARRATIVE: CASE EVENT DATE: 20200814
